FAERS Safety Report 5086643-3 (Version None)
Quarter: 2006Q3

REPORT INFORMATION
  Report Type: 
  Country: None (occurrence: None)
  Receive Date: 20060823
  Receipt Date: 20060817
  Transmission Date: 20061208
  Serious: Yes (Hospitalization)
  Sender: FDA-Public Use
  Company Number: US-BRISTOL-MYERS SQUIBB COMPANY-13479399

PATIENT
  Sex: Male
  Weight: 90 kg

DRUGS (2)
  1. SINEMET [Suspect]
     Indication: PARKINSON'S DISEASE
     Dosage: DURATION: 3-4 YEARS
  2. STALEVO 100 [Concomitant]
     Dosage: DURATION: 2-3 YEARS

REACTIONS (1)
  - GALLBLADDER PAIN [None]
